FAERS Safety Report 18114878 (Version 1)
Quarter: 2020Q3

REPORT INFORMATION
  Report Type: Spontaneous
  Country: AR (occurrence: AR)
  Receive Date: 20200805
  Receipt Date: 20200805
  Transmission Date: 20201103
  Serious: Yes (Other)
  Sender: FDA-Public Use
  Company Number: AR-PFIZER INC-2020295835

PATIENT
  Age: 62 Year
  Sex: Female

DRUGS (1)
  1. IBRANCE [Suspect]
     Active Substance: PALBOCICLIB
     Dosage: 125 MG

REACTIONS (5)
  - Red blood cell count decreased [Unknown]
  - Gait disturbance [Unknown]
  - White blood cell count decreased [Unknown]
  - Feeling abnormal [Unknown]
  - Decreased immune responsiveness [Unknown]
